FAERS Safety Report 5737600-2 (Version None)
Quarter: 2008Q2

REPORT INFORMATION
  Report Type: 
  Country: None (occurrence: None)
  Receive Date: 20080514
  Receipt Date: 20071011
  Transmission Date: 20081010
  Serious: Yes (Life-Threatening, Hospitalization)
  Sender: FDA-Public Use
  Company Number: GXKR2007GB08802

PATIENT
  Age: 33 Year
  Sex: Female

DRUGS (7)
  1. CLOZAPINE [Suspect]
     Indication: SCHIZOPHRENIA
     Dosage: 425 MG, UNK
     Route: 048
     Dates: start: 20020516, end: 20050927
  2. VALPROIC ACID [Suspect]
     Route: 065
  3. ZAPONEX [Suspect]
     Indication: SCHIZOPHRENIA
     Dosage: 425 MG, UNK
     Route: 048
     Dates: end: 20060731
  4. AMISULPRIDE [Concomitant]
     Route: 065
     Dates: start: 20050803
  5. SCOPOLAMINE [Concomitant]
     Route: 065
     Dates: start: 20050803
  6. SENNA [Concomitant]
     Route: 065
  7. PAROXETINE (NGX) [Suspect]
     Route: 065
     Dates: start: 20050928, end: 20060728

REACTIONS (4)
  - IDIOPATHIC THROMBOCYTOPENIC PURPURA [None]
  - SOMNOLENCE [None]
  - TACHYCARDIA [None]
  - THROMBOCYTOPENIA [None]
